FAERS Safety Report 18552423 (Version 1)
Quarter: 2020Q4

REPORT INFORMATION
  Report Type: Spontaneous
  Country: US (occurrence: US)
  Receive Date: 20201127
  Receipt Date: 20201127
  Transmission Date: 20210114
  Serious: No
  Sender: FDA-Public Use
  Company Number: US-GLAXOSMITHKLINE-US2020229113

PATIENT

DRUGS (3)
  1. VOLTAREN ARTHRITIS PAIN [Suspect]
     Active Substance: DICLOFENAC SODIUM
     Indication: ARTHRITIS
     Dosage: UNK UNK, BID
  2. BETADINE [Suspect]
     Active Substance: POVIDONE-IODINE
     Indication: PRODUCT USED FOR UNKNOWN INDICATION
     Dosage: UNK
  3. BACITRACIN. [Suspect]
     Active Substance: BACITRACIN
     Indication: PRODUCT USED FOR UNKNOWN INDICATION
     Dosage: UNK

REACTIONS (4)
  - Urticaria [Recovering/Resolving]
  - Drug hypersensitivity [Unknown]
  - Inappropriate schedule of product administration [Unknown]
  - Accidental exposure to product [Unknown]
